FAERS Safety Report 5566464-5 (Version None)
Quarter: 2007Q4

REPORT INFORMATION
  Report Type: 
  Country: None (occurrence: None)
  Receive Date: 20071219
  Receipt Date: 20070508
  Transmission Date: 20080405
  Serious: No
  Sender: FDA-Public Use
  Company Number: US-ABBOTT-07P-163-0368114-00

PATIENT
  Age: 50 Year
  Sex: Female

DRUGS (1)
  1. VICODIN [Suspect]
     Indication: PAIN
     Route: 048
     Dates: start: 20070427, end: 20070430

REACTIONS (1)
  - RASH [None]
